FAERS Safety Report 14007119 (Version 1)
Quarter: 2017Q3

REPORT INFORMATION
  Report Type: Spontaneous
  Country: US (occurrence: US)
  Receive Date: 20170923
  Receipt Date: 20170923
  Transmission Date: 20171128
  Serious: Yes (Other)
  Sender: FDA-Public Use
  Company Number: None

PATIENT
  Age: 56 Year
  Sex: Female
  Weight: 61.65 kg

DRUGS (17)
  1. FLONASE ALLERGY SPRAY [Concomitant]
  2. MULTIPLE VITAMIN [Concomitant]
     Active Substance: VITAMINS
  3. CHORD/CLIDI (LIBRAX) [Concomitant]
  4. METFORMIN [Concomitant]
     Active Substance: METFORMIN HYDROCHLORIDE
  5. DIGESTIVE ENZYMES [Concomitant]
     Active Substance: UNSPECIFIED INGREDIENT
  6. MIRALAX [Concomitant]
     Active Substance: POLYETHYLENE GLYCOL 3350
  7. CEPHALEXIN. [Suspect]
     Active Substance: CEPHALEXIN
     Indication: ESCHERICHIA INFECTION
     Dosage: ?          QUANTITY:10 CAPSULE(S);?
     Route: 048
     Dates: start: 20170918, end: 20170923
  8. TRAAMADOL [Concomitant]
  9. LOW-DOSE ASPIRIN [Concomitant]
     Active Substance: ASPIRIN
  10. CALCIUM [Concomitant]
     Active Substance: CALCIUM
  11. OMNEPRAZOLE [Concomitant]
  12. FISH OIL [Concomitant]
     Active Substance: FISH OIL
  13. VITAMIN D [Concomitant]
     Active Substance: CHOLECALCIFEROL
  14. DHEA [Concomitant]
     Active Substance: PRASTERONE
  15. TYLENOL ARTHRITIS PAIN [Concomitant]
     Active Substance: ACETAMINOPHEN
  16. VITAMIN C [Concomitant]
     Active Substance: ASCORBIC ACID
  17. MAGNESIUM [Concomitant]
     Active Substance: MAGNESIUM

REACTIONS (2)
  - Vulvovaginal burning sensation [None]
  - Abdominal tenderness [None]

NARRATIVE: CASE EVENT DATE: 20170919
